FAERS Safety Report 12225403 (Version 1)
Quarter: 2016Q1

REPORT INFORMATION
  Report Type: Spontaneous
  Country: JP (occurrence: JP)
  Receive Date: 20160331
  Receipt Date: 20160331
  Transmission Date: 20160526
  Serious: Yes (Hospitalization)
  Sender: FDA-Public Use
  Company Number: JP-GLAXOSMITHKLINE-JP2016JPN016647

PATIENT
  Age: 53 Year
  Sex: Male

DRUGS (12)
  1. ZYPREXA [Concomitant]
     Active Substance: OLANZAPINE
     Dosage: 20 MG, 1D
     Dates: start: 201603
  2. LANSOPRAZOLE. [Concomitant]
     Active Substance: LANSOPRAZOLE
     Dosage: UNK
  3. SODIUM PICOSULFATE HYDRATE [Concomitant]
     Dosage: UNK
  4. SULPIRIDE [Concomitant]
     Active Substance: SULPIRIDE
     Dosage: UNK
     Dates: end: 2016
  5. LAMICTAL [Suspect]
     Active Substance: LAMOTRIGINE
     Indication: BIPOLAR DISORDER
     Dosage: 25 MG, QD
     Route: 048
     Dates: start: 20160121
  6. LAMICTAL [Suspect]
     Active Substance: LAMOTRIGINE
     Dosage: 100 MG, QD
     Route: 048
     Dates: end: 20160229
  7. CLONAZEPAM. [Concomitant]
     Active Substance: CLONAZEPAM
     Indication: BIPOLAR DISORDER
     Dosage: 15 MG, QD
  8. ZYPREXA [Concomitant]
     Active Substance: OLANZAPINE
     Indication: BIPOLAR DISORDER
     Dosage: 10 MG, QD
  9. CONTOMIN [Concomitant]
     Active Substance: CHLORPROMAZINE
     Dosage: UNK UNK, 1D
  10. BROTIZOLAM [Concomitant]
     Active Substance: BROTIZOLAM
     Indication: BIPOLAR DISORDER
     Dosage: 0.25 MG, QD
  11. MAGNESIUM OXIDE. [Concomitant]
     Active Substance: MAGNESIUM OXIDE
     Dosage: UNK
  12. SENNOSIDE [Concomitant]
     Active Substance: SENNOSIDES
     Dosage: UNK

REACTIONS (6)
  - Logorrhoea [Unknown]
  - Anger [Unknown]
  - Euphoric mood [Not Recovered/Not Resolved]
  - Mania [Not Recovered/Not Resolved]
  - Hyperkinesia [Unknown]
  - Mood altered [Unknown]

NARRATIVE: CASE EVENT DATE: 201602
